FAERS Safety Report 10961894 (Version 2)
Quarter: 2015Q3

REPORT INFORMATION
  Report Type: Spontaneous
  Country: IT (occurrence: IT)
  Receive Date: 20150327
  Receipt Date: 20150713
  Transmission Date: 20151125
  Serious: Yes (Hospitalization)
  Sender: FDA-Public Use
  Company Number: IT-SA-2015SA037487

PATIENT
  Age: 83 Year
  Sex: Female

DRUGS (5)
  1. SIRTAP [Suspect]
     Active Substance: CEFTRIAXONE SODIUM
     Route: 042
     Dates: start: 20150228, end: 20150308
  2. MANNITOL. [Suspect]
     Active Substance: MANNITOL
     Route: 048
     Dates: start: 20150226, end: 20150308
  3. KEPPRA [Concomitant]
     Active Substance: LEVETIRACETAM
  4. FERLIXIT [Suspect]
     Active Substance: SODIUM FERRIC GLUCONATE COMPLEX
     Indication: ANAEMIA
     Route: 042
     Dates: start: 20150302, end: 20150308
  5. CLEXANE [Concomitant]
     Active Substance: ENOXAPARIN SODIUM

REACTIONS (2)
  - Lip swelling [Unknown]
  - Macroglossia [Unknown]

NARRATIVE: CASE EVENT DATE: 20150305
